FAERS Safety Report 12498864 (Version 1)
Quarter: 2016Q2

REPORT INFORMATION
  Report Type: Report from Study
  Country: FR (occurrence: FR)
  Receive Date: 20160627
  Receipt Date: 20160627
  Transmission Date: 20160815
  Serious: Yes (Hospitalization)
  Sender: FDA-Public Use
  Company Number: FR-ROCHE-1780760

PATIENT
  Sex: Female

DRUGS (13)
  1. RITUXIMAB [Suspect]
     Active Substance: RITUXIMAB
     Dosage: DAY 15
     Route: 042
     Dates: start: 20070705
  2. RITUXIMAB [Suspect]
     Active Substance: RITUXIMAB
     Dosage: DAY 1
     Route: 042
     Dates: start: 20081119
  3. RITUXIMAB [Suspect]
     Active Substance: RITUXIMAB
     Dosage: DAY 15
     Route: 042
     Dates: start: 20051208
  4. RITUXIMAB [Suspect]
     Active Substance: RITUXIMAB
     Dosage: DAY 1
     Route: 042
     Dates: start: 20070622
  5. RITUXIMAB [Suspect]
     Active Substance: RITUXIMAB
     Dosage: DAY 1
     Route: 042
     Dates: start: 20140130
  6. RITUXIMAB [Suspect]
     Active Substance: RITUXIMAB
     Dosage: DAY 15
     Route: 042
     Dates: start: 20140214
  7. METHOTREXATE [Concomitant]
     Active Substance: METHOTREXATE
     Dosage: METHOTREXATE 5 TABS/WEEKS ONLY FOR THE FIRST ADMINISTRATION OF RITUXIMAB
     Route: 065
  8. CORTANCYL [Concomitant]
     Active Substance: PREDNISONE
     Route: 065
  9. RITUXIMAB [Suspect]
     Active Substance: RITUXIMAB
     Dosage: DAY 15
     Route: 042
     Dates: start: 20081203
  10. METHOTREXATE [Concomitant]
     Active Substance: METHOTREXATE
     Dosage: ONLY FOR THE FIRST ADMINISTRATION OF RITUXIMAB
     Route: 065
  11. RITUXIMAB [Suspect]
     Active Substance: RITUXIMAB
     Indication: RHEUMATOID ARTHRITIS
     Dosage: DAY 1
     Route: 042
     Dates: start: 20051124
  12. METHOTREXATE [Concomitant]
     Active Substance: METHOTREXATE
     Dosage: ONLY FOR THE FIRST ADMINISTRATION OF RITUXIMAB
     Route: 065
  13. CORTANCYL [Concomitant]
     Active Substance: PREDNISONE
     Route: 065

REACTIONS (9)
  - Uveitis [Not Recovered/Not Resolved]
  - Wound dehiscence [Recovered/Resolved]
  - Cataract [Not Recovered/Not Resolved]
  - Vitreous haemorrhage [Unknown]
  - Hip fracture [Recovered/Resolved]
  - Device breakage [Unknown]
  - Pneumocystis jirovecii pneumonia [Recovered/Resolved]
  - Breast disorder [Recovered/Resolved]
  - Breast necrosis [Recovered/Resolved]

NARRATIVE: CASE EVENT DATE: 200705
